FAERS Safety Report 24126283 (Version 2)
Quarter: 2024Q3

REPORT INFORMATION
  Report Type: Spontaneous
  Country: US (occurrence: US)
  Receive Date: 20240723
  Receipt Date: 20240925
  Transmission Date: 20241017
  Serious: Yes (Hospitalization, Other)
  Sender: BRISTOL MYERS SQUIBB
  Company Number: US-BRISTOL-MYERS SQUIBB COMPANY-2024-110455

PATIENT
  Age: 53 Year
  Sex: Male

DRUGS (1)
  1. THALOMID [Suspect]
     Active Substance: THALIDOMIDE
     Indication: Plasma cell myeloma
     Dosage: FREQUENCY: 1 QD HS
     Route: 048

REACTIONS (6)
  - Limb injury [Unknown]
  - Dehydration [Unknown]
  - Oedema peripheral [Unknown]
  - Bone marrow disorder [Unknown]
  - Perineal injury [Unknown]
  - Product dose omission issue [Unknown]
